FAERS Safety Report 8118446-7 (Version None)
Quarter: 2012Q1

REPORT INFORMATION
  Report Type: 
  Country: None (occurrence: None)
  Receive Date: 20120207
  Receipt Date: 20120202
  Transmission Date: 20120608
  Serious: Yes (Other)
  Sender: FDA-Public Use
  Company Number: US-AMGEN-USASP2011065114

PATIENT
  Age: 49 Year
  Sex: Female
  Weight: 100 kg

DRUGS (11)
  1. EPOGEN [Suspect]
     Dosage: 28000 IU, 3 TIMES/WK
     Route: 058
     Dates: start: 20101026
  2. ZINC SULFATE [Concomitant]
  3. PLAVIX [Concomitant]
  4. NORVASC [Concomitant]
  5. ACCUPRIL [Concomitant]
  6. LORTAB [Concomitant]
     Dosage: 28000 IU, 3 TIMES/WK
  7. LANTUS [Concomitant]
  8. EPOGEN [Suspect]
     Indication: RENAL FAILURE CHRONIC
     Dosage: 20000 IU, 3 TIMES/WK
     Dates: start: 20081013, end: 20101026
  9. ZOCOR [Concomitant]
  10. ACTOS [Concomitant]
  11. VENOFER [Concomitant]
     Dosage: 100 MG, UNK

REACTIONS (2)
  - THERAPEUTIC RESPONSE DECREASED [None]
  - APLASIA PURE RED CELL [None]
